FAERS Safety Report 8375000-X (Version None)
Quarter: 2012Q2

REPORT INFORMATION
  Report Type: 
  Country: None (occurrence: None)
  Receive Date: 20120521
  Receipt Date: 20120515
  Transmission Date: 20120825
  Serious: Yes (Death)
  Sender: FDA-Public Use
  Company Number: DE-ROCHE-1070164

PATIENT
  Sex: Female

DRUGS (10)
  1. METHOTREXATE [Concomitant]
     Dates: start: 20070601
  2. ANAKINRA [Concomitant]
     Dates: start: 20020501, end: 20030301
  3. MABTHERA [Suspect]
     Indication: PRODUCT USED FOR UNKNOWN INDICATION
     Dates: start: 20081128
  4. ADALIMUMAB [Concomitant]
     Dates: start: 20030701, end: 20040801
  5. METHOTREXATE [Concomitant]
     Dates: start: 20040201, end: 20060901
  6. ETANERCEPT [Concomitant]
     Dates: start: 20040801, end: 20060901
  7. HYDROXYCHLOROQUINE SULFATE [Concomitant]
     Dates: start: 20080201, end: 20080201
  8. METHOTREXATE [Concomitant]
     Dates: start: 20000801, end: 20031101
  9. ARAVA [Concomitant]
     Dates: start: 20011101, end: 20020101
  10. SALICYLAZOSULFAPYRIDINE [Concomitant]
     Dates: start: 20080201, end: 20080201

REACTIONS (2)
  - PULMONARY OEDEMA [None]
  - METASTASES TO LUNG [None]
